FAERS Safety Report 6276977-9 (Version None)
Quarter: 2009Q3

REPORT INFORMATION
  Report Type: 
  Country: None (occurrence: None)
  Receive Date: 20090722
  Receipt Date: 20081107
  Transmission Date: 20100115
  Serious: No
  Sender: FDA-Public Use
  Company Number: US-BRISTOL-MYERS SQUIBB COMPANY-14399596

PATIENT
  Age: 76 Year
  Sex: Male

DRUGS (9)
  1. COUMADIN [Suspect]
     Indication: ATRIAL FLUTTER
  2. LOVENOX [Suspect]
     Indication: ATRIAL FLUTTER
     Dosage: SOLN FOR INJ, 100MG SYRINGE LAST DOSE ON: 04-OCT-2008
     Route: 058
     Dates: start: 20080930, end: 20081004
  3. ASPIRIN [Concomitant]
     Dates: end: 20081004
  4. ZYLOPRIM [Concomitant]
  5. ATENOLOL [Concomitant]
  6. PROSCAR [Concomitant]
  7. LISINOPRIL [Concomitant]
  8. SIMVASTATIN [Concomitant]
  9. PRILOSEC [Concomitant]

REACTIONS (4)
  - HAEMORRHAGE [None]
  - INJECTION SITE HAEMATOMA [None]
  - INJECTION SITE HAEMORRHAGE [None]
  - PETECHIAE [None]
